FAERS Safety Report 4974380-2 (Version None)
Quarter: 2006Q2

REPORT INFORMATION
  Report Type: 
  Country: None (occurrence: None)
  Receive Date: 20060417
  Receipt Date: 20051216
  Transmission Date: 20061013
  Serious: Yes (Disabling)
  Sender: FDA-Public Use
  Company Number: US-ROCHE-429283

PATIENT
  Age: 52 Year
  Sex: Female

DRUGS (4)
  1. PEGASYS [Suspect]
     Route: 065
     Dates: start: 20050924, end: 20060304
  2. RIBAVIRIN [Suspect]
     Route: 048
     Dates: start: 20050924, end: 20060304
  3. PROCRIT [Concomitant]
  4. NEUPOGEN [Concomitant]

REACTIONS (14)
  - ASTHENIA [None]
  - CONTUSION [None]
  - DEPRESSION [None]
  - DIARRHOEA [None]
  - DIZZINESS [None]
  - DYSPHAGIA [None]
  - FATIGUE [None]
  - FOREIGN BODY TRAUMA [None]
  - GASTRITIS [None]
  - HEADACHE [None]
  - IRRITABILITY [None]
  - MUSCLE ATROPHY [None]
  - NAUSEA [None]
  - WEIGHT DECREASED [None]
